FAERS Safety Report 18632810 (Version 1)
Quarter: 2020Q4

REPORT INFORMATION
  Report Type: Spontaneous
  Country: US (occurrence: US)
  Receive Date: 20201217
  Receipt Date: 20201217
  Transmission Date: 20210114
  Serious: Yes (Death)
  Sender: FDA-Public Use
  Company Number: None

PATIENT
  Age: 69 Year
  Sex: Male

DRUGS (3)
  1. REMDESIVIR. [Suspect]
     Active Substance: REMDESIVIR
     Indication: COVID-19
     Route: 040
     Dates: start: 20201023, end: 20201024
  2. HEPARIN 8 UNITS/KG/HR [Concomitant]
     Dates: start: 20201022
  3. METHYPREDNISOLONE 50 MG Q12H [Concomitant]
     Dates: start: 20201023

REACTIONS (2)
  - Cardiac arrest [None]
  - Hypotension [None]

NARRATIVE: CASE EVENT DATE: 20201025
